FAERS Safety Report 17130184 (Version 2)
Quarter: 2019Q4

REPORT INFORMATION
  Report Type: Report from Study
  Country: US (occurrence: US)
  Receive Date: 20191209
  Receipt Date: 20191220
  Transmission Date: 20200122
  Serious: Yes (Life-Threatening, Hospitalization)
  Sender: FDA-Public Use
  Company Number: US-RETROPHIN, INC.-2019RTN00120

PATIENT
  Age: 1 Month
  Sex: Female
  Weight: 3.5 kg

DRUGS (7)
  1. CHOLIC ACID [Suspect]
     Active Substance: CHOLIC ACID
     Indication: CEREBROHEPATORENAL SYNDROME
     Dosage: 50 MG, 1X/DAY
     Route: 048
     Dates: start: 20191113, end: 2019
  2. VITAMIN K [Concomitant]
     Active Substance: PHYTONADIONE
  3. VITAMIN D [Concomitant]
     Active Substance: VITAMIN D NOS
  4. UNSPECIFIED MULTIVITAMINS [Concomitant]
  5. VITAMIN A [Concomitant]
     Active Substance: VITAMIN A
  6. CHOLIC ACID [Suspect]
     Active Substance: CHOLIC ACID
     Dosage: 50 MG, 1X/DAY
     Route: 048
     Dates: start: 2019
  7. VITAMIN E [Concomitant]
     Active Substance: .ALPHA.-TOCOPHEROL

REACTIONS (1)
  - Meningitis streptococcal [Not Recovered/Not Resolved]

NARRATIVE: CASE EVENT DATE: 20191124
